FAERS Safety Report 4358413-2 (Version None)
Quarter: 2004Q2

REPORT INFORMATION
  Report Type: 
  Country: None (occurrence: None)
  Receive Date: 20040511
  Receipt Date: 20040427
  Transmission Date: 20050107
  Serious: Yes (Hospitalization)
  Sender: FDA-Public Use
  Company Number: US-JNJFOC-20040405958

PATIENT
  Age: 61 Year
  Sex: Male
  Weight: 120.2032 kg

DRUGS (15)
  1. INFLIXIMB (INFLIXIMAB, RECOMBINANT) LYOPHILIZED POWDER [Suspect]
     Indication: RHEUMATOID ARTHRITIS
     Dosage: INTRAVENOUS
     Route: 042
     Dates: start: 20020905, end: 20020920
  2. TOPROL-XL [Concomitant]
  3. COUMADIN [Concomitant]
  4. COVERA-HS [Concomitant]
  5. FOLIC ACID [Concomitant]
  6. CYCLOBENZAPRINE HCL [Concomitant]
  7. POTASSIUM (POTASSIUM) [Concomitant]
  8. AMARYL [Concomitant]
  9. PREDNISONE [Concomitant]
  10. CALCIUM (CALCIUM) [Concomitant]
  11. METHOTREXATE [Concomitant]
  12. FOSAMAX [Concomitant]
  13. WELCHOL [Concomitant]
  14. CRESTOR (ALL OTHER THERAPEUTIC PRODUCTS) [Concomitant]
  15. HUMIRA [Concomitant]

REACTIONS (8)
  - AORTIC STENOSIS [None]
  - AORTIC VALVE CALCIFICATION [None]
  - AORTIC VALVE INCOMPETENCE [None]
  - ATRIAL FIBRILLATION [None]
  - CORONARY ARTERY DISEASE [None]
  - DEEP VEIN THROMBOSIS [None]
  - DILATATION VENTRICULAR [None]
  - MITRAL VALVE INCOMPETENCE [None]
